FAERS Safety Report 4571599-X (Version None)
Quarter: 2005Q1

REPORT INFORMATION
  Report Type: 
  Country: None (occurrence: None)
  Receive Date: 20050203
  Receipt Date: 20050203
  Transmission Date: 20050727
  Serious: Yes (Other)
  Sender: FDA-Public Use
  Company Number: None

PATIENT
  Sex: Female

DRUGS (1)
  1. KLONOPIN [Suspect]
     Dosage: 1 MG QID PO
     Route: 048
     Dates: start: 19991029, end: 20040406

REACTIONS (1)
  - THERAPEUTIC RESPONSE DECREASED [None]
